FAERS Safety Report 10486274 (Version 4)
Quarter: 2014Q4

REPORT INFORMATION
  Report Type: Report from Study
  Country: DE (occurrence: DE)
  Receive Date: 20141001
  Receipt Date: 20141113
  Transmission Date: 20150528
  Serious: Yes (Other)
  Sender: FDA-Public Use
  Company Number: PHHY2014DE125595

PATIENT
  Sex: Female
  Weight: 56 kg

DRUGS (4)
  1. BISOPROLOL [Concomitant]
     Active Substance: BISOPROLOL
     Indication: HYPERTENSION
     Dosage: 2.5 MG, QD
     Route: 048
     Dates: start: 20111031
  2. ICL670A [Suspect]
     Active Substance: DEFERASIROX
     Indication: SERUM FERRITIN DECREASED
     Dosage: 500 MG, QD
     Route: 065
     Dates: start: 20140510
  3. ERYTHROCYTES [Concomitant]
     Active Substance: HUMAN RED BLOOD CELL
     Indication: PRODUCT USED FOR UNKNOWN INDICATION
     Dosage: 2 DF, QMO (2 CONCENTRATES)
     Route: 065
     Dates: start: 20130904
  4. ICL670A [Suspect]
     Active Substance: DEFERASIROX
     Indication: MYELODYSPLASTIC SYNDROME
     Dosage: 1000 MG, QD
     Route: 065
     Dates: start: 20140225, end: 20140503

REACTIONS (2)
  - Creatinine renal clearance decreased [Unknown]
  - Osteosclerosis [Not Recovered/Not Resolved]

NARRATIVE: CASE EVENT DATE: 20140806
